FAERS Safety Report 13762804 (Version 1)
Quarter: 2017Q3

REPORT INFORMATION
  Report Type: Spontaneous
  Country: JP (occurrence: JP)
  Receive Date: 20170718
  Receipt Date: 20170718
  Transmission Date: 20171127
  Serious: Yes (Hospitalization)
  Sender: FDA-Public Use
  Company Number: JP-BAYER-2017-130648

PATIENT
  Age: 49 Year
  Sex: Male

DRUGS (1)
  1. NEXAVAR [Suspect]
     Active Substance: SORAFENIB
     Indication: HEPATOCELLULAR CARCINOMA
     Dosage: UNK
     Route: 048

REACTIONS (6)
  - Dyspepsia [None]
  - Malaise [None]
  - Oesophageal ulcer [None]
  - Thoracic haemorrhage [None]
  - Decreased appetite [None]
  - Gastrointestinal necrosis [None]
